FAERS Safety Report 5305389-7 (Version None)
Quarter: 2007Q1

REPORT INFORMATION
  Report Type: 
  Country: None (occurrence: None)
  Receive Date: 20070201
  Receipt Date: 20061108
  Transmission Date: 20070707
  Serious: No
  Sender: FDA-Public Use
  Company Number: 2006PV025012

PATIENT
  Sex: Male

DRUGS (4)
  1. BYETTA [Suspect]
     Indication: DIABETES MELLITUS NON-INSULIN-DEPENDENT
     Dosage: 5 MCG;BID;SC
     Route: 058
     Dates: start: 20050101
  2. PROPRANOLOL [Concomitant]
  3. FETANYL [Concomitant]
  4. VERSED [Concomitant]

REACTIONS (2)
  - BLADDER CANCER [None]
  - DELAYED RECOVERY FROM ANAESTHESIA [None]
